FAERS Safety Report 7276395-0 (Version None)
Quarter: 2011Q1

REPORT INFORMATION
  Report Type: 
  Country: None (occurrence: None)
  Receive Date: 20110204
  Receipt Date: 20110201
  Transmission Date: 20110831
  Serious: Yes (Life-Threatening, Other)
  Sender: FDA-Public Use
  Company Number: GB-PFIZER INC-2011023667

PATIENT
  Age: 62 Year
  Sex: Male
  Weight: 77 kg

DRUGS (5)
  1. CHAMPIX [Suspect]
     Dosage: UNK
     Dates: start: 20101101
  2. SIMVASTATIN [Concomitant]
     Dosage: UNK
     Dates: start: 20100928, end: 20110106
  3. FOLIC ACID [Concomitant]
     Dosage: UNK
     Dates: start: 20100625, end: 20110101
  4. METHOTREXATE SODIUM [Concomitant]
     Dosage: UNK
     Dates: start: 20100510, end: 20110101
  5. RAMIPRIL [Concomitant]
     Dosage: UNK
     Dates: start: 20100928, end: 20110106

REACTIONS (1)
  - ACUTE PULMONARY OEDEMA [None]
